FAERS Safety Report 22914723 (Version 2)
Quarter: 2023Q4

REPORT INFORMATION
  Report Type: Spontaneous
  Country: JP (occurrence: JP)
  Receive Date: 20230907
  Receipt Date: 20231005
  Transmission Date: 20240109
  Serious: Yes (Other)
  Sender: FDA-Public Use
  Company Number: JP-BoehringerIngelheim-2023-BI-259084

PATIENT
  Age: 41 Year
  Sex: Female

DRUGS (1)
  1. DABIGATRAN ETEXILATE MESYLATE [Suspect]
     Active Substance: DABIGATRAN ETEXILATE MESYLATE
     Indication: Ischaemic stroke
     Route: 065

REACTIONS (7)
  - Ischaemic stroke [Unknown]
  - Cerebral infarction [Unknown]
  - Cerebral artery occlusion [Unknown]
  - Arterial disorder [Unknown]
  - Ischaemic stroke [Unknown]
  - Vascular malformation [Unknown]
  - Fibromuscular dysplasia [Unknown]
